FAERS Safety Report 7039508-1 (Version None)
Quarter: 2010Q4

REPORT INFORMATION
  Report Type: 
  Country: None (occurrence: None)
  Receive Date: 20101012
  Receipt Date: 20100930
  Transmission Date: 20110411
  Serious: Yes (Hospitalization)
  Sender: FDA-Public Use
  Company Number: FR-WYE-H17992110

PATIENT
  Sex: Male

DRUGS (11)
  1. INIPOMP [Suspect]
     Route: 048
     Dates: end: 20100818
  2. TRIATEC [Suspect]
     Dosage: 10 MG, FREQUENCY UNSPECIFIED
     Route: 048
  3. TAHOR [Suspect]
     Dosage: 10 MG, FREQUENCY UNSPECIFIED
     Route: 048
  4. PERMIXON [Concomitant]
     Dosage: 320 MG, FREQUENCY UNSPECIFIED
     Route: 048
     Dates: end: 20100818
  5. BISOPROLOL FUMARATE [Concomitant]
     Dosage: 5 MG, FREQUENCY UNSPECIFIED
     Route: 048
  6. VASTAREL [Concomitant]
     Dosage: 60 MG, FREQUENCY UNSPECIFIED
     Route: 048
  7. BRONCHODUAL [Concomitant]
     Dosage: 3 DOSAGE FORMS
     Route: 055
  8. BECOTIDE [Concomitant]
     Dosage: 4 DOSAGE FORMS
     Route: 055
  9. TEGRETOL [Suspect]
     Route: 048
     Dates: end: 20100818
  10. TEGRETOL [Suspect]
     Dosage: 3 DOSAGE FORMS (1.5 DOSAGE FORMS, 2 IN 1 D)
     Route: 048
     Dates: start: 20100819
  11. KARDEGIC [Concomitant]
     Dosage: 75 MG, FREQUENCY UNSPECIFIED
     Route: 048

REACTIONS (1)
  - HYPONATRAEMIA [None]
